FAERS Safety Report 12048421 (Version 1)
Quarter: 2016Q1

REPORT INFORMATION
  Report Type: Spontaneous
  Country: FR (occurrence: FR)
  Receive Date: 20160208
  Receipt Date: 20160208
  Transmission Date: 20160526
  Serious: Yes (Other)
  Sender: FDA-Public Use
  Company Number: FR-BAYER-2016-023551

PATIENT
  Age: 55 Year
  Sex: Male

DRUGS (1)
  1. ASPIRINE PROTECT 100 MG COMPRIM? GASTRO-R?SISTANT [Suspect]
     Active Substance: ASPIRIN

REACTIONS (2)
  - Coronary artery reocclusion [None]
  - Drug ineffective [None]
